FAERS Safety Report 6175581-0 (Version None)
Quarter: 2009Q2

REPORT INFORMATION
  Report Type: 
  Country: None (occurrence: None)
  Receive Date: 20090501
  Receipt Date: 20090428
  Transmission Date: 20091009
  Serious: Yes (Life-Threatening)
  Sender: FDA-Public Use
  Company Number: FR-JNJFOC-20090406413

PATIENT
  Age: 31 Year
  Sex: Female

DRUGS (15)
  1. EPITOMAX [Suspect]
     Indication: DRUG USE FOR UNKNOWN INDICATION
     Route: 048
  2. FOSPHENYTOIN SODIUM [Suspect]
  3. FOSPHENYTOIN SODIUM [Suspect]
     Indication: ELECTROENCEPHALOGRAM ABNORMAL
  4. DEPAKENE [Concomitant]
     Route: 065
  5. ACYCLOVIR [Concomitant]
     Indication: MENINGOENCEPHALITIS ADENOVIRAL
     Route: 065
  6. DOXYCYCLINE [Concomitant]
     Route: 065
  7. CORTICOSTEROID [Concomitant]
     Route: 065
  8. CORTICOSTEROID [Concomitant]
     Route: 065
  9. VEINOGLOBULIN [Concomitant]
     Route: 065
  10. ROCEPHIN [Concomitant]
     Route: 065
  11. CEFROM [Concomitant]
     Route: 065
  12. URBANYL [Concomitant]
     Indication: EPILEPSY
     Route: 065
  13. THIOPENTAL SODIUM [Concomitant]
     Route: 065
  14. KETAMINE HCL [Concomitant]
     Route: 065
  15. CIPROFLOXACIN HYDROCHLORIDE [Concomitant]
     Route: 065

REACTIONS (5)
  - BLOOD CREATININE INCREASED [None]
  - CHOLESTASIS [None]
  - CYTOLYTIC HEPATITIS [None]
  - OEDEMA [None]
  - RASH ERYTHEMATOUS [None]
